FAERS Safety Report 8558648-9 (Version None)
Quarter: 2012Q3

REPORT INFORMATION
  Report Type: 
  Country: None (occurrence: None)
  Receive Date: 20120801
  Receipt Date: 20120717
  Transmission Date: 20120928
  Serious: Yes (Other)
  Sender: FDA-Public Use
  Company Number: CHPA2012US015895

PATIENT
  Age: 77 Year
  Sex: Female

DRUGS (2)
  1. PERDIEM FIBER [Suspect]
     Indication: CONSTIPATION
     Dosage: UNK, EVERY NIGHT
     Route: 048
  2. PERDIEM OVERNIGHT RELIEF PILLS [Suspect]
     Indication: CONSTIPATION
     Dosage: 2 DF, AT NIGHT
     Route: 048

REACTIONS (2)
  - GASTROINTESTINAL DISORDER [None]
  - COLON CANCER [None]
